FAERS Safety Report 4747260-5 (Version None)
Quarter: 2005Q3

REPORT INFORMATION
  Report Type: 
  Country: None (occurrence: None)
  Receive Date: 20050817
  Receipt Date: 20050711
  Transmission Date: 20060218
  Serious: Yes (Hospitalization, Other)
  Sender: FDA-Public Use
  Company Number: US-MERCK-0507USA01439

PATIENT
  Age: 64 Year
  Sex: Male
  Weight: 87 kg

DRUGS (9)
  1. ZETIA [Suspect]
     Indication: HYPERCHOLESTEROLAEMIA
     Route: 048
     Dates: end: 20050101
  2. FLEXERIL [Concomitant]
     Route: 065
  3. DIOVAN HCT [Concomitant]
     Route: 065
  4. DIAZEPAM [Concomitant]
     Route: 065
  5. PROTONIX [Concomitant]
     Route: 065
  6. MINOXIDIL 2% [Concomitant]
     Route: 065
  7. NASACORT [Concomitant]
     Route: 065
  8. NIACIN [Concomitant]
     Route: 065
  9. VALSARTAN [Concomitant]
     Route: 065

REACTIONS (2)
  - RENAL FAILURE [None]
  - RHABDOMYOLYSIS [None]
